FAERS Safety Report 4611453-8 (Version None)
Quarter: 2005Q1

REPORT INFORMATION
  Report Type: 
  Country: None (occurrence: None)
  Receive Date: 20050317
  Receipt Date: 20050309
  Transmission Date: 20050727
  Serious: Yes (Death)
  Sender: FDA-Public Use
  Company Number: PHEH2005US02953

PATIENT
  Age: 74 Year
  Sex: Male

DRUGS (1)
  1. CLOZARIL [Suspect]

REACTIONS (4)
  - CARDIAC FAILURE CONGESTIVE [None]
  - CHRONIC OBSTRUCTIVE PULMONARY DISEASE [None]
  - INFLUENZA [None]
  - PNEUMONIA [None]
